FAERS Safety Report 10142515 (Version 4)
Quarter: 2014Q3

REPORT INFORMATION
  Report Type: Spontaneous
  Country: US (occurrence: US)
  Receive Date: 20140430
  Receipt Date: 20140709
  Transmission Date: 20150326
  Serious: Yes (Disabling)
  Sender: FDA-Public Use
  Company Number: US-009507513-1404USA013879

PATIENT
  Age: 19 Year
  Sex: Female
  Weight: 70.75 kg

DRUGS (1)
  1. IMPLANON [Suspect]
     Active Substance: ETONOGESTREL
     Dosage: LEFT ARM, IN THE SULCUS BICIPITALIS MEDIALIS
     Route: 059
     Dates: start: 20121024, end: 20140428

REACTIONS (12)
  - Abdominal pain [Not Recovered/Not Resolved]
  - Vaginal haemorrhage [Not Recovered/Not Resolved]
  - Device difficult to use [Recovered/Resolved]
  - Breast tenderness [Not Recovered/Not Resolved]
  - Weight increased [Not Recovered/Not Resolved]
  - Device kink [Recovered/Resolved]
  - Vomiting [Unknown]
  - Nausea [Unknown]
  - Abdominal pain lower [Unknown]
  - Pain [Unknown]
  - Pain [Unknown]
  - Ovarian cyst ruptured [Not Recovered/Not Resolved]

NARRATIVE: CASE EVENT DATE: 20121024
